FAERS Safety Report 7894381 (Version 4)
Quarter: 2012Q4

REPORT INFORMATION
  Report Type: Report from Study
  Country: JP (occurrence: JP)
  Receive Date: 20110412
  Receipt Date: 20121121
  Transmission Date: 20130627
  Serious: Yes (Hospitalization)
  Sender: FDA-Public Use
  Company Number: JP-CELGENEUS-087-21880-11040682

PATIENT
  Age: 76 Year
  Sex: Male

DRUGS (17)
  1. REVLIMID [Suspect]
     Indication: MULTIPLE MYELOMA
     Dosage: 25 Milligram
     Route: 048
     Dates: start: 20110107, end: 20110127
  2. REVLIMID [Suspect]
     Dosage: 25 Milligram
     Route: 048
     Dates: start: 20110207, end: 20110227
  3. REVLIMID [Suspect]
     Dosage: 25 Milligram
     Route: 048
     Dates: start: 20110307, end: 20110310
  4. LENADEX [Suspect]
     Indication: MULTIPLE MYELOMA
     Dosage: 40 Milligram
     Route: 048
     Dates: start: 20110107, end: 20110126
  5. LENADEX [Suspect]
     Dosage: 40 Milligram
     Route: 048
     Dates: start: 20110207, end: 20110226
  6. LENADEX [Suspect]
     Dosage: 40 Milligram
     Route: 048
     Dates: start: 20110307, end: 20110310
  7. PURSENNID [Concomitant]
     Indication: CONSTIPATION
     Dosage: 36 Milligram
     Route: 048
  8. MAGLAX [Concomitant]
     Indication: CONSTIPATION
     Dosage: 1.5 Gram
     Route: 048
  9. TAKEPRON [Concomitant]
     Indication: GASTRIC ULCER
     Dosage: 30 Milligram
     Route: 048
  10. PROMAC [Concomitant]
     Indication: GASTRIC ULCER
     Dosage: 150 Milligram
     Route: 048
  11. METHYCOBAL [Concomitant]
     Indication: PERIPHERAL NERVE DISORDER NOS
     Dosage: 1.5 Milligram
     Route: 048
  12. MASHI-NIN-GAN [Concomitant]
     Indication: CONSTIPATION
     Dosage: 2 packs
     Route: 048
  13. LASIX [Concomitant]
     Indication: CARDIAC FAILURE
     Dosage: 40 Milligram
     Route: 048
  14. TOFRANIL [Concomitant]
     Indication: PERIPHERAL NERVE DISORDER NOS
     Dosage: 50 Milligram
     Route: 048
  15. LENDORMIN [Concomitant]
     Indication: INSOMNIA
     Dosage: .5 Milligram
     Route: 048
  16. EPADEL S [Concomitant]
     Indication: HYPERLIPIDEMIA
     Dosage: 2700 Milligram
     Route: 048
  17. GABAPEN [Concomitant]
     Indication: PERIPHERAL NERVE DISORDER NOS
     Dosage: 1200 Milligram
     Route: 048

REACTIONS (3)
  - Skin ulcer [Recovered/Resolved]
  - Thrombocytopenia [Recovered/Resolved]
  - Staphylococcal scalded skin syndrome [Recovered/Resolved]
